FAERS Safety Report 7404519-0 (Version None)
Quarter: 2011Q2

REPORT INFORMATION
  Report Type: 
  Country: None (occurrence: None)
  Receive Date: 20110410
  Receipt Date: 20110401
  Transmission Date: 20111010
  Serious: Yes (Other)
  Sender: FDA-Public Use
  Company Number: GB-BRISTOL-MYERS SQUIBB COMPANY-15478605

PATIENT
  Age: 57 Year
  Sex: Female
  Weight: 84 kg

DRUGS (3)
  1. ERBITUX [Suspect]
     Indication: COLORECTAL CANCER
     Dosage: 9 WK UNTIL TREATMENT BREAK FOR 1 WK,MOST RECENT ON 24DEC10,12TH INFUSION,8OCT10-24DEC10,7JAN11-ONG
     Route: 042
     Dates: start: 20101008
  2. OXALIPLATIN [Suspect]
     Indication: COLORECTAL CANCER
     Dosage: 9 WEEKS UNTIL TREATMENT BREAK FOR 1 WK,MOST RECENTLY ON 10DEC10,UNK-10DEC10,07JAN2011-ONG
     Route: 042
  3. CAPECITABINE [Suspect]
     Indication: COLORECTAL CANCER
     Dosage: 9 WK UNTIL TREAT BREAK FOR 1 WK,RECENTLY 24DEC10,UNK-24DEC10,25%DOSE REDUCTION:07JAN11-ONG(750MG/M2
     Route: 048

REACTIONS (1)
  - PALMAR-PLANTAR ERYTHRODYSAESTHESIA SYNDROME [None]
